FAERS Safety Report 5022416-5 (Version None)
Quarter: 2006Q2

REPORT INFORMATION
  Report Type: 
  Country: None (occurrence: None)
  Receive Date: 20060609
  Receipt Date: 20020121
  Transmission Date: 20061013
  Serious: Yes (Hospitalization)
  Sender: FDA-Public Use
  Company Number: MX-ROCHE-305644

PATIENT
  Age: 51 Year
  Sex: Male
  Weight: 75 kg

DRUGS (5)
  1. PEG-INTERFERON ALFA 2A (RO 25-8310) [Suspect]
     Route: 058
     Dates: start: 20011022, end: 20020114
  2. PEG-INTERFERON ALFA 2A (RO 25-8310) [Suspect]
     Route: 058
     Dates: start: 20020116
  3. RIBAVIRIN [Suspect]
     Route: 048
     Dates: start: 20011022, end: 20020114
  4. RIBAVIRIN [Suspect]
     Route: 048
     Dates: start: 20020116
  5. ACETAMINOPHEN [Concomitant]
     Dosage: NO MORE THAN 4 DOSES PER WEEK.
     Route: 048

REACTIONS (3)
  - EPISTAXIS [None]
  - HAEMOGLOBIN DECREASED [None]
  - PLATELET COUNT DECREASED [None]
